FAERS Safety Report 18341363 (Version 1)
Quarter: 2020Q4

REPORT INFORMATION
  Report Type: Report from Study
  Country: GT (occurrence: GT)
  Receive Date: 20201003
  Receipt Date: 20201003
  Transmission Date: 20210113
  Serious: Yes (Death)
  Sender: FDA-Public Use
  Company Number: NVSC2020GT267808

PATIENT
  Sex: Female

DRUGS (2)
  1. VIVITAR [Concomitant]
     Active Substance: SPIRONOLACTONE
     Dosage: UNK
  2. VYMADA [Suspect]
     Active Substance: SACUBITRIL\VALSARTAN
     Indication: PRODUCT USED FOR UNKNOWN INDICATION
     Dosage: 50 MG, UNKNOWN
     Route: 065

REACTIONS (3)
  - Death [Fatal]
  - Blood pressure abnormal [Unknown]
  - Cardiac disorder [Unknown]
